FAERS Safety Report 18542837 (Version 1)
Quarter: 2020Q4

REPORT INFORMATION
  Report Type: Spontaneous
  Country: US (occurrence: US)
  Receive Date: 20201124
  Receipt Date: 20201124
  Transmission Date: 20210114
  Serious: No
  Sender: FDA-Public Use
  Company Number: US-BEH-2020125163

PATIENT
  Sex: Female

DRUGS (1)
  1. HIZENTRA [Suspect]
     Active Substance: HUMAN IMMUNOGLOBULIN G
     Indication: HYPOGAMMAGLOBULINAEMIA
     Dosage: 3 GRAM, QW
     Route: 042
     Dates: start: 202010

REACTIONS (4)
  - SARS-CoV-2 test negative [Unknown]
  - Incorrect route of product administration [Unknown]
  - Nasopharyngitis [Unknown]
  - No adverse event [Unknown]
